FAERS Safety Report 20545939 (Version 1)
Quarter: 2022Q1

REPORT INFORMATION
  Report Type: Spontaneous
  Country: US (occurrence: None)
  Receive Date: 20220303
  Receipt Date: 20220303
  Transmission Date: 20220423
  Serious: Yes (Death)
  Sender: FDA-Public Use
  Company Number: None

PATIENT
  Sex: Female
  Weight: 64.54 kg

DRUGS (2)
  1. CYCLOPHOSPHAMIDE [Suspect]
     Active Substance: CYCLOPHOSPHAMIDE
     Dates: end: 20091202
  2. TAXOTERE [Suspect]
     Active Substance: DOCETAXEL
     Dates: end: 20091202

REACTIONS (3)
  - Allogenic stem cell transplantation [None]
  - Acute respiratory failure [None]
  - Lung disorder [None]

NARRATIVE: CASE EVENT DATE: 20210923
